FAERS Safety Report 8273603-4 (Version None)
Quarter: 2012Q2

REPORT INFORMATION
  Report Type: 
  Country: None (occurrence: None)
  Receive Date: 20120411
  Receipt Date: 20120405
  Transmission Date: 20120825
  Serious: No
  Sender: FDA-Public Use
  Company Number: US-PFIZER INC-2012086984

PATIENT

DRUGS (1)
  1. VISTARIL [Suspect]
     Dosage: 50 MG, EVERY BEDTIME
     Route: 048

REACTIONS (1)
  - MENTAL DISORDER [None]
